FAERS Safety Report 17667535 (Version 3)
Quarter: 2020Q2

REPORT INFORMATION
  Report Type: Spontaneous
  Country: US (occurrence: US)
  Receive Date: 20200414
  Receipt Date: 20200507
  Transmission Date: 20200713
  Serious: Yes (Other)
  Sender: FDA-Public Use
  Company Number: US-ASTRAZENECA-2020SE50482

PATIENT
  Age: 21744 Day
  Sex: Male
  Weight: 103.9 kg

DRUGS (2)
  1. BICALUTAMIDE CASODEX [Concomitant]
     Dates: start: 20200319
  2. CALQUENCE [Suspect]
     Active Substance: ACALABRUTINIB
     Indication: CHRONIC LYMPHOCYTIC LEUKAEMIA
     Route: 048
     Dates: start: 20190501, end: 20200410

REACTIONS (3)
  - Metastases to pelvis [Unknown]
  - Prostate cancer metastatic [Unknown]
  - Metastases to spine [Unknown]

NARRATIVE: CASE EVENT DATE: 20200319
